FAERS Safety Report 7037079-7 (Version None)
Quarter: 2010Q4

REPORT INFORMATION
  Report Type: 
  Country: None (occurrence: None)
  Receive Date: 20101011
  Receipt Date: 20100927
  Transmission Date: 20110411
  Serious: Yes (Other)
  Sender: FDA-Public Use
  Company Number: PHHY2010TW63977

PATIENT
  Sex: Female
  Weight: 58 kg

DRUGS (1)
  1. ZOLEDRONATE T29581++BM [Suspect]
     Indication: METASTASES TO BONE
     Dosage: 4MG /DAY
     Route: 042
     Dates: start: 20100408, end: 20100913

REACTIONS (4)
  - BONE DISORDER [None]
  - OSTEOMYELITIS CHRONIC [None]
  - PAIN [None]
  - SWELLING [None]
